FAERS Safety Report 9854150 (Version 2)
Quarter: 2014Q1

REPORT INFORMATION
  Report Type: Spontaneous
  Country: US (occurrence: US)
  Receive Date: 20140130
  Receipt Date: 20140130
  Transmission Date: 20141002
  Serious: Yes (Other)
  Sender: FDA-Public Use
  Company Number: US-ROCHE-1319913

PATIENT
  Sex: Female

DRUGS (8)
  1. ERIVEDGE [Suspect]
     Indication: BASAL CELL CARCINOMA
     Route: 048
     Dates: start: 20130615, end: 20131219
  2. ERIVEDGE [Suspect]
     Indication: PYODERMA
  3. ALLOPURINOL [Concomitant]
  4. ASPIRIN [Concomitant]
  5. LISINOPRIL [Concomitant]
  6. TRIAMTERENE [Concomitant]
  7. PROPRANOLOL [Concomitant]
  8. SIMVASTATIN [Concomitant]

REACTIONS (2)
  - Cerebrovascular accident [Unknown]
  - Alopecia [Unknown]
